FAERS Safety Report 15935043 (Version 7)
Quarter: 2019Q2

REPORT INFORMATION
  Report Type: Spontaneous
  Country: JP (occurrence: JP)
  Receive Date: 20190207
  Receipt Date: 20190502
  Transmission Date: 20190711
  Serious: Yes (Death, Hospitalization, Other)
  Sender: FDA-Public Use
  Company Number: JP-SEATTLE GENETICS-2019SGN00209

PATIENT
  Age: 58 Year
  Sex: Male

DRUGS (4)
  1. PENTASA [Suspect]
     Active Substance: MESALAMINE
     Indication: PRODUCT USED FOR UNKNOWN INDICATION
     Dosage: UNK
     Route: 065
  2. ADCETRIS [Suspect]
     Active Substance: BRENTUXIMAB VEDOTIN
     Dosage: 3 DOSAGE FORM, Q21D
     Route: 041
     Dates: start: 20190225
  3. ADCETRIS [Suspect]
     Active Substance: BRENTUXIMAB VEDOTIN
     Indication: HODGKIN^S DISEASE
     Dosage: 1.8 MILLIGRAM/KILOGRAM, Q21D
     Route: 041
     Dates: start: 20181012
  4. PENTASA [Suspect]
     Active Substance: MESALAMINE
     Dosage: UNK
     Route: 065

REACTIONS (6)
  - Haemophagocytic lymphohistiocytosis [Fatal]
  - Disease progression [Fatal]
  - Peripheral T-cell lymphoma unspecified [Fatal]
  - Hodgkin^s disease [Fatal]
  - Cytomegalovirus infection [Recovered/Resolved]
  - Pyrexia [Recovering/Resolving]

NARRATIVE: CASE EVENT DATE: 20190125
